FAERS Safety Report 6010081-X (Version None)
Quarter: 2008Q4

REPORT INFORMATION
  Report Type: 
  Country: None (occurrence: None)
  Receive Date: 20081218
  Receipt Date: 20081210
  Transmission Date: 20090506
  Serious: Yes (Death, Life-Threatening, Hospitalization)
  Sender: FDA-Public Use
  Company Number: FR-BAXTER-2008BH010783

PATIENT
  Age: 81 Year
  Sex: Female
  Weight: 56 kg

DRUGS (2)
  1. ENDOXAN BAXTER [Suspect]
     Indication: SUICIDE ATTEMPT
     Route: 048
     Dates: start: 20081008, end: 20081008
  2. KARDEGIC /FRA/ [Concomitant]

REACTIONS (4)
  - INTENTIONAL DRUG MISUSE [None]
  - LUNG INFECTION [None]
  - PANCYTOPENIA [None]
  - SUICIDE ATTEMPT [None]
